FAERS Safety Report 5815701-8 (Version None)
Quarter: 2008Q3

REPORT INFORMATION
  Report Type: 
  Country: None (occurrence: None)
  Receive Date: 20080721
  Receipt Date: 20080709
  Transmission Date: 20090109
  Serious: Yes (Other)
  Sender: FDA-Public Use
  Company Number: US-WYE-H05007908

PATIENT
  Sex: Female

DRUGS (1)
  1. ROBITUSSIN COUGH [Suspect]
     Dosage: 40 COUGH GELS AT ONE TIME
     Route: 048

REACTIONS (3)
  - DRUG ABUSE [None]
  - DRUG SCREEN FALSE POSITIVE [None]
  - OVERDOSE [None]
